FAERS Safety Report 8238744-6 (Version None)
Quarter: 2012Q1

REPORT INFORMATION
  Report Type: 
  Country: None (occurrence: None)
  Receive Date: 20120327
  Receipt Date: 20120320
  Transmission Date: 20120608
  Serious: Yes (Life-Threatening, Hospitalization, Other)
  Sender: FDA-Public Use
  Company Number: US-JNJFOC-20120204340

PATIENT
  Sex: Male

DRUGS (6)
  1. INVEGA SUSTENNA [Suspect]
     Dosage: ON 18-JAN-OF AN UNSPECIFIED YEAR
     Route: 030
  2. INVEGA SUSTENNA [Suspect]
     Indication: SCHIZOPHRENIA
     Dosage: ON 28-SEP-OF AN UNSPECIFIED YEAR
     Route: 030
  3. INVEGA SUSTENNA [Suspect]
     Dosage: ON 12-DEC-OF AN UNSPECIFIED YEAR
     Route: 030
  4. INVEGA SUSTENNA [Suspect]
     Dosage: ON 01-NOV-OF AN UNSPECIFIED YEAR
     Route: 030
  5. INVEGA SUSTENNA [Suspect]
     Dosage: ON 17-AUG-OF AN UNSPECIFIED YEAR
     Route: 030
  6. INVEGA SUSTENNA [Suspect]
     Dosage: ON 25-AUG-OF AN UNSPECIFIED YEAR
     Route: 030

REACTIONS (4)
  - HAEMATOMA [None]
  - ASTHENIA [None]
  - CONTUSION [None]
  - THROMBOCYTOPENIA [None]
